FAERS Safety Report 23452878 (Version 3)
Quarter: 2025Q2

REPORT INFORMATION
  Report Type: Spontaneous
  Country: US (occurrence: US)
  Receive Date: 20240129
  Receipt Date: 20250621
  Transmission Date: 20250716
  Serious: No
  Sender: SANOFI AVENTIS
  Company Number: US-SA-SAC20240122001489

PATIENT
  Age: 5 Year
  Sex: Male

DRUGS (2)
  1. DUPIXENT [Suspect]
     Active Substance: DUPILUMAB
     Indication: Dermatitis allergic
     Dosage: 300 MG, Q4W
     Route: 058
  2. DUPIXENT [Suspect]
     Active Substance: DUPILUMAB
     Indication: Dermatitis atopic
     Dosage: 300 MG, Q5W
     Route: 058

REACTIONS (11)
  - Fungal skin infection [Recovered/Resolved]
  - Sleep disorder [Unknown]
  - Skin exfoliation [Unknown]
  - Dermatitis atopic [Unknown]
  - Dry skin [Not Recovered/Not Resolved]
  - Rash erythematous [Unknown]
  - Rash [Unknown]
  - Skin haemorrhage [Unknown]
  - Pruritus [Not Recovered/Not Resolved]
  - Skin fissures [Unknown]
  - Off label use [Unknown]
